FAERS Safety Report 5627851-X (Version None)
Quarter: 2008Q1

REPORT INFORMATION
  Report Type: 
  Country: None (occurrence: None)
  Receive Date: 20080215
  Receipt Date: 20080207
  Transmission Date: 20080703
  Serious: Yes (Other)
  Sender: FDA-Public Use
  Company Number: US-BAYER-200813122NA

PATIENT
  Sex: Male

DRUGS (3)
  1. NEXAVAR [Suspect]
     Indication: RENAL CELL CARCINOMA
     Route: 048
  2. SUTENT [Concomitant]
     Indication: RENAL CELL CARCINOMA
  3. TORISEL [Concomitant]
     Indication: RENAL CELL CARCINOMA

REACTIONS (1)
  - RENAL CELL CARCINOMA [None]
